FAERS Safety Report 12395628 (Version 1)
Quarter: 2016Q2

REPORT INFORMATION
  Report Type: Spontaneous
  Country: GB (occurrence: GB)
  Receive Date: 20160523
  Receipt Date: 20160523
  Transmission Date: 20160815
  Serious: Yes (Other)
  Sender: FDA-Public Use
  Company Number: GB-TEVA-660198ACC

PATIENT
  Age: 63 Year
  Sex: Male
  Weight: 100 kg

DRUGS (2)
  1. SERTRALINE [Suspect]
     Active Substance: SERTRALINE HYDROCHLORIDE
     Indication: DEPRESSION
     Dosage: 100 REDUCING. ONE MONTH AGO TO 50
     Route: 048
     Dates: start: 201604
  2. SERTRALINE [Suspect]
     Active Substance: SERTRALINE HYDROCHLORIDE
     Indication: DEPRESSION
     Dosage: 100 REDUCING. ONE MONTH AGO TO 50
     Route: 048
     Dates: start: 20140101, end: 201604

REACTIONS (9)
  - Nightmare [Recovering/Resolving]
  - Diarrhoea [Recovering/Resolving]
  - Abnormal weight gain [Recovering/Resolving]
  - Confusional state [Recovering/Resolving]
  - Flatulence [Recovering/Resolving]
  - Spermatozoa abnormal [Recovering/Resolving]
  - Dizziness [Recovering/Resolving]
  - Alopecia [Recovering/Resolving]
  - Disturbance in attention [Unknown]

NARRATIVE: CASE EVENT DATE: 20140101
